FAERS Safety Report 25111591 (Version 1)
Quarter: 2025Q1

REPORT INFORMATION
  Report Type: Spontaneous
  Country: US (occurrence: US)
  Receive Date: 20250324
  Receipt Date: 20250324
  Transmission Date: 20250409
  Serious: Yes (Hospitalization, Other)
  Sender: ALEMBIC
  Company Number: US-ALEMBIC-2025SCAL000210

PATIENT

DRUGS (4)
  1. LACOSAMIDE [Interacting]
     Active Substance: LACOSAMIDE
     Indication: Seizure
     Route: 065
  2. FLECAINIDE [Interacting]
     Active Substance: FLECAINIDE
     Indication: Atrial fibrillation
     Route: 065
  3. TESSALON [Interacting]
     Active Substance: BENZONATATE
     Indication: Cough
     Route: 065
  4. APIXABAN [Concomitant]
     Active Substance: APIXABAN
     Indication: Atrial fibrillation
     Route: 065

REACTIONS (6)
  - Electrocardiogram QT prolonged [Unknown]
  - Bundle branch block right [Unknown]
  - Drug interaction [Unknown]
  - Atrioventricular block first degree [Unknown]
  - Sinus bradycardia [Recovering/Resolving]
  - Syncope [Unknown]
